FAERS Safety Report 6010087-0 (Version None)
Quarter: 2008Q4

REPORT INFORMATION
  Report Type: 
  Country: None (occurrence: None)
  Receive Date: 20081216
  Receipt Date: 20081201
  Transmission Date: 20090506
  Serious: Yes (Hospitalization)
  Sender: FDA-Public Use
  Company Number: KV200800644

PATIENT
  Age: 59 Year
  Sex: Female
  Weight: 99.8 kg

DRUGS (2)
  1. PROPAFENONE HCL [Suspect]
     Indication: HEART RATE IRREGULAR
     Dosage: 150 MG, TID, ORAL
     Route: 048
     Dates: start: 20081012, end: 20081019
  2. SYNTHROID [Concomitant]

REACTIONS (3)
  - HEART RATE INCREASED [None]
  - HEART RATE IRREGULAR [None]
  - PRODUCT QUALITY ISSUE [None]
